FAERS Safety Report 12451218 (Version 1)
Quarter: 2016Q2

REPORT INFORMATION
  Report Type: Report from Study
  Country: US (occurrence: US)
  Receive Date: 20160609
  Receipt Date: 20160609
  Transmission Date: 20160815
  Serious: Yes (Hospitalization, Other)
  Sender: FDA-Public Use
  Company Number: US-AMGEN-USASL2016072866

PATIENT
  Age: 51 Year
  Sex: Male

DRUGS (1)
  1. ENBREL [Suspect]
     Active Substance: ETANERCEPT
     Indication: RHEUMATOID ARTHRITIS
     Dosage: 50 MG, UNK
     Route: 065

REACTIONS (9)
  - Aphasia [Recovering/Resolving]
  - Fall [Unknown]
  - Arthralgia [Unknown]
  - Cardiac failure [Unknown]
  - Memory impairment [Unknown]
  - Hospitalisation [Unknown]
  - Abasia [Recovered/Resolved]
  - Cerebrovascular accident [Unknown]
  - Skull fracture [Unknown]

NARRATIVE: CASE EVENT DATE: 201602
